FAERS Safety Report 5157361-8 (Version None)
Quarter: 2006Q4

REPORT INFORMATION
  Report Type: 
  Country: None (occurrence: None)
  Receive Date: 20061127
  Receipt Date: 20061115
  Transmission Date: 20070319
  Serious: Yes (Disabling, Other)
  Sender: FDA-Public Use
  Company Number: GB-AVENTIS-200621894GDDC

PATIENT
  Age: 41 Year
  Sex: Female

DRUGS (5)
  1. ARAVA [Suspect]
     Indication: PSORIATIC ARTHROPATHY
     Dosage: DOSE: UNK
     Route: 048
     Dates: start: 20060606, end: 20060912
  2. AMITRIPTYLINE HCL [Concomitant]
     Route: 048
  3. ETORICOXIB [Concomitant]
     Route: 048
  4. FOSAMAX [Concomitant]
  5. LANSOPRAZOLE [Concomitant]
     Route: 048

REACTIONS (1)
  - THYROID FUNCTION TEST ABNORMAL [None]
